APPROVED DRUG PRODUCT: ALTRENO
Active Ingredient: TRETINOIN
Strength: 0.05%
Dosage Form/Route: LOTION;TOPICAL
Application: N209353 | Product #001
Applicant: DOW PHARMACEUTICAL SCIENCES
Approved: Aug 23, 2018 | RLD: Yes | RS: Yes | Type: RX

PATENTS:
Patent 10653656 | Expires: Aug 22, 2038
Patent 11324710 | Expires: Aug 22, 2038